FAERS Safety Report 11695665 (Version 1)
Quarter: 2015Q4

REPORT INFORMATION
  Report Type: Spontaneous
  Country: US (occurrence: None)
  Receive Date: 20151103
  Receipt Date: 20151103
  Transmission Date: 20160304
  Serious: Yes (Death)
  Sender: FDA-Public Use
  Company Number: None

PATIENT
  Age: 63 Year
  Sex: Male
  Weight: 92.53 kg

DRUGS (1)
  1. ALDESLEUKIN [Suspect]
     Active Substance: ALDESLEUKIN
     Indication: RENAL CELL CARCINOMA
     Dosage: 600 KIU/KG Q 8 HOURS
     Route: 042
     Dates: start: 20140714, end: 20140716

REACTIONS (10)
  - Lethargy [None]
  - Dysphagia [None]
  - Dyspnoea [None]
  - Fluid overload [None]
  - Cholangiocarcinoma [None]
  - Lymphadenopathy mediastinal [None]
  - Pleural effusion [None]
  - Pleural fibrosis [None]
  - Hypoxia [None]
  - Respiratory distress [None]

NARRATIVE: CASE EVENT DATE: 20140720
